FAERS Safety Report 21897697 (Version 2)
Quarter: 2023Q1

REPORT INFORMATION
  Report Type: Report from Study
  Country: US (occurrence: US)
  Receive Date: 20230123
  Receipt Date: 20230213
  Transmission Date: 20230417
  Serious: No
  Sender: FDA-Public Use
  Company Number: US-SA-SAC20230119001897

PATIENT
  Age: 64 Year
  Sex: Female
  Weight: 61.2 kg

DRUGS (1)
  1. DUPIXENT [Suspect]
     Active Substance: DUPILUMAB
     Indication: Asthma
     Dosage: UNK, 1X
     Dates: start: 20221230, end: 20221230

REACTIONS (6)
  - Drug hypersensitivity [Unknown]
  - Lip blister [Unknown]
  - Oral pruritus [Unknown]
  - Throat irritation [Unknown]
  - Ear pruritus [Unknown]
  - Lip pruritus [Unknown]

NARRATIVE: CASE EVENT DATE: 20221230
